FAERS Safety Report 18058652 (Version 1)
Quarter: 2020Q3

REPORT INFORMATION
  Report Type: Other
  Country: JP (occurrence: JP)
  Receive Date: 20200723
  Receipt Date: 20200723
  Transmission Date: 20201103
  Serious: Yes (Hospitalization, Other)
  Sender: FDA-Public Use
  Company Number: JP-NUVO PHARMACEUTICALS INC-2087647

PATIENT
  Age: 47 Year
  Sex: Female

DRUGS (8)
  1. ESOMEPRAZOLE. [Concomitant]
     Active Substance: ESOMEPRAZOLE MAGNESIUM
     Route: 065
  2. PROCHLORPERAZINE. [Concomitant]
     Active Substance: PROCHLORPERAZINE
     Route: 065
  3. OXYCODONE HYDROCHLORIDE. [Suspect]
     Active Substance: OXYCODONE HYDROCHLORIDE
     Indication: PAIN
     Route: 065
  4. METHADONE [Suspect]
     Active Substance: METHADONE HYDROCHLORIDE
     Route: 065
  5. PREGABALIN CAPSULES, CV [Concomitant]
     Active Substance: PREGABALIN
     Route: 065
  6. DULOXETINE. [Suspect]
     Active Substance: DULOXETINE
     Route: 065
  7. CELECOXIB. [Concomitant]
     Active Substance: CELECOXIB
     Route: 065
  8. MAGNESIUM OXIDE. [Concomitant]
     Active Substance: MAGNESIUM OXIDE
     Route: 065

REACTIONS (1)
  - Serotonin syndrome [Recovered/Resolved]
